FAERS Safety Report 12808141 (Version 1)
Quarter: 2016Q4

REPORT INFORMATION
  Report Type: Spontaneous
  Country: US (occurrence: US)
  Receive Date: 20161004
  Receipt Date: 20161004
  Transmission Date: 20170207
  Serious: No
  Sender: FDA-Public Use
  Company Number: US-PFIZER INC-2016461553

PATIENT
  Age: 65 Year
  Sex: Male

DRUGS (1)
  1. FLAGYL [Suspect]
     Active Substance: METRONIDAZOLE\METRONIDAZOLE HYDROCHLORIDE
     Indication: DIARRHOEA
     Dosage: UNK

REACTIONS (5)
  - Condition aggravated [Unknown]
  - Pain [Unknown]
  - Product use issue [Unknown]
  - Myalgia [Unknown]
  - Fatigue [Unknown]
